FAERS Safety Report 7110140-4 (Version None)
Quarter: 2010Q4

REPORT INFORMATION
  Report Type: 
  Country: None (occurrence: None)
  Receive Date: 20101112
  Receipt Date: 20101027
  Transmission Date: 20110411
  Serious: Yes (Hospitalization)
  Sender: FDA-Public Use
  Company Number: 1-17293419

PATIENT
  Age: 68 Year
  Sex: Male
  Weight: 81.6475 kg

DRUGS (4)
  1. QUININE SULFATE [Suspect]
     Indication: MUSCLE SPASMS
     Dosage: AS NEEDED, ORAL
     Route: 048
     Dates: start: 20040524, end: 20060101
  2. NEXIUM [Concomitant]
  3. PROSCAR [Concomitant]
  4. ALEVE [Concomitant]

REACTIONS (10)
  - COAGULOPATHY [None]
  - DRUG HYPERSENSITIVITY [None]
  - ESCHERICHIA INFECTION [None]
  - GASTROOESOPHAGEAL REFLUX DISEASE [None]
  - HAEMORRHAGIC DISORDER [None]
  - IDIOPATHIC THROMBOCYTOPENIC PURPURA [None]
  - PAIN [None]
  - RESTLESS LEGS SYNDROME [None]
  - SURGERY [None]
  - UNEVALUABLE EVENT [None]
